FAERS Safety Report 7548613-2 (Version None)
Quarter: 2011Q2

REPORT INFORMATION
  Report Type: 
  Country: None (occurrence: None)
  Receive Date: 20110615
  Receipt Date: 20110607
  Transmission Date: 20111010
  Serious: Yes (Other)
  Sender: FDA-Public Use
  Company Number: GB-SANOFI-AVENTIS-2011SA036124

PATIENT
  Sex: Female

DRUGS (3)
  1. AUTOPEN 24 [Suspect]
     Dates: end: 20110603
  2. LANTUS [Suspect]
     Dates: end: 20110603
  3. NOVORAPID [Concomitant]
     Indication: TYPE 1 DIABETES MELLITUS

REACTIONS (4)
  - HYPOGLYCAEMIA [None]
  - WEIGHT INCREASED [None]
  - WEIGHT DECREASED [None]
  - BLOOD GLUCOSE INCREASED [None]
